FAERS Safety Report 8006998-7 (Version None)
Quarter: 2011Q4

REPORT INFORMATION
  Report Type: 
  Country: None (occurrence: None)
  Receive Date: 20111220
  Receipt Date: 20111208
  Transmission Date: 20120403
  Serious: Yes (Death, Other)
  Sender: FDA-Public Use
  Company Number: THYM-1001237

PATIENT
  Age: 28 Year
  Sex: Male
  Weight: 55 kg

DRUGS (17)
  1. PREDNISOLONE ACETATE [Concomitant]
  2. TACROLIMUS [Concomitant]
  3. PLATELETS (PLATELETS) [Concomitant]
  4. THIOTEPA [Concomitant]
  5. AMPHOTERICIN B [Concomitant]
  6. VANCOMYCIN HYDROCHLORIDE [Concomitant]
  7. IMMUNE GLOBULIN INTRAVENOUS (HUMAN) [Concomitant]
  8. PLASMA [Concomitant]
  9. MYCOPHENOLATE MOFETIL [Concomitant]
  10. THYMOGLOBULIN [Suspect]
     Indication: BONE MARROW CONDITIONING REGIMEN
     Dosage: 0.5 MG/KG, ONCE, 2 MG/KG, ONCE, 50 MG, QD
     Dates: start: 20090626, end: 20090629
  11. THYMOGLOBULIN [Suspect]
     Indication: ACUTE GRAFT VERSUS HOST DISEASE
     Dosage: 0.5 MG/KG, ONCE, 2 MG/KG, ONCE, 50 MG, QD
     Dates: start: 20090626, end: 20090629
  12. THYMOGLOBULIN [Suspect]
     Indication: BONE MARROW CONDITIONING REGIMEN
     Dosage: 0.5 MG/KG, ONCE, 2 MG/KG, ONCE, 50 MG, QD
     Dates: start: 20090427, end: 20090427
  13. THYMOGLOBULIN [Suspect]
     Indication: ACUTE GRAFT VERSUS HOST DISEASE
     Dosage: 0.5 MG/KG, ONCE, 2 MG/KG, ONCE, 50 MG, QD
     Dates: start: 20090427, end: 20090427
  14. THYMOGLOBULIN [Suspect]
     Indication: BONE MARROW CONDITIONING REGIMEN
     Dosage: 0.5 MG/KG, ONCE, 2 MG/KG, ONCE, 50 MG, QD
     Dates: start: 20090521, end: 20090521
  15. THYMOGLOBULIN [Suspect]
     Indication: ACUTE GRAFT VERSUS HOST DISEASE
     Dosage: 0.5 MG/KG, ONCE, 2 MG/KG, ONCE, 50 MG, QD
     Dates: start: 20090521, end: 20090521
  16. VORICONAZOLE [Concomitant]
  17. MEROPENEM [Concomitant]

REACTIONS (4)
  - BRONCHOPULMONARY ASPERGILLOSIS [None]
  - ACUTE GRAFT VERSUS HOST DISEASE [None]
  - NEOPLASM PROGRESSION [None]
  - NON-HODGKIN'S LYMPHOMA [None]
